FAERS Safety Report 9391438 (Version 1)
Quarter: 2013Q3

REPORT INFORMATION
  Report Type: Spontaneous
  Country: FR (occurrence: FR)
  Receive Date: 20130709
  Receipt Date: 20130709
  Transmission Date: 20140515
  Serious: Yes (Hospitalization)
  Sender: FDA-Public Use
  Company Number: FR-ABBOTT-13X-056-1115957-00

PATIENT
  Age: 83 Year
  Sex: Male

DRUGS (2)
  1. DEPAKINE [Suspect]
     Indication: SUICIDE ATTEMPT
     Route: 048
     Dates: start: 20130519, end: 20130519
  2. GARDENAL [Suspect]
     Indication: SUICIDE ATTEMPT
     Dates: start: 20130519, end: 20130519

REACTIONS (2)
  - Intentional overdose [Recovered/Resolved]
  - Asthenia [Recovered/Resolved]
